FAERS Safety Report 21148275 (Version 3)
Quarter: 2022Q3

REPORT INFORMATION
  Report Type: Spontaneous
  Country: US (occurrence: US)
  Receive Date: 20220729
  Receipt Date: 20220907
  Transmission Date: 20221026
  Serious: Yes (Hospitalization, Other)
  Sender: FDA-Public Use
  Company Number: US-BRISTOL-MYERS SQUIBB COMPANY-2022-082374

PATIENT
  Age: 80 Year
  Sex: Male

DRUGS (1)
  1. POMALYST [Suspect]
     Active Substance: POMALIDOMIDE
     Indication: Plasma cell myeloma
     Dosage: FREQ: EVERY DAY FOR 21 DAYS THEN OFF FOR 7 DAYS FOR 28 DAY CYCLE
     Route: 048
     Dates: start: 202205

REACTIONS (3)
  - COVID-19 [Recovered/Resolved]
  - Malaise [Not Recovered/Not Resolved]
  - COVID-19 pneumonia [Recovered/Resolved]

NARRATIVE: CASE EVENT DATE: 20220725
